FAERS Safety Report 25151151 (Version 3)
Quarter: 2025Q2

REPORT INFORMATION
  Report Type: Spontaneous
  Country: JP (occurrence: JP)
  Receive Date: 20250402
  Receipt Date: 20250418
  Transmission Date: 20250717
  Serious: Yes (Other)
  Sender: AMGEN
  Company Number: JP-AMGEN-JPNSP2025060989

PATIENT
  Age: 9 Decade
  Sex: Male

DRUGS (2)
  1. OTEZLA [Suspect]
     Active Substance: APREMILAST
     Indication: Psoriasis
     Dosage: UNK, BID (60 MILLIGRAM)
     Route: 048
  2. SOTYKTU [Suspect]
     Active Substance: DEUCRAVACITINIB
     Indication: Psoriasis
     Route: 065
     Dates: end: 202412

REACTIONS (3)
  - Lung neoplasm malignant [Unknown]
  - Therapeutic product effect incomplete [Unknown]
  - Psoriasis [Recovering/Resolving]
